FAERS Safety Report 25235512 (Version 1)
Quarter: 2025Q2

REPORT INFORMATION
  Report Type: Spontaneous
  Country: US (occurrence: None)
  Receive Date: 20250424
  Receipt Date: 20250424
  Transmission Date: 20250717
  Serious: Yes (Hospitalization)
  Sender: FDA-CTU
  Company Number: None

PATIENT
  Sex: Female

DRUGS (11)
  1. LENALIDOMIDE [Suspect]
     Active Substance: LENALIDOMIDE
     Indication: Plasma cell myeloma
     Route: 048
     Dates: start: 20240802
  2. ALBUTEROL AER HFA [Concomitant]
  3. ASPIRIN LOW EC [Concomitant]
  4. ATORVASTATIN [Concomitant]
     Active Substance: ATORVASTATIN
  5. COENZYME Q10 [Concomitant]
     Active Substance: DIETARY SUPPLEMENT\UBIDECARENONE
  6. DEXAMETHASONE [Concomitant]
     Active Substance: DEXAMETHASONE
  7. GLIPIZIDE ER [Concomitant]
     Active Substance: GLIPIZIDE
  8. GLUCOSAMINE VITA D3 [Concomitant]
  9. IBUPROFEN [Concomitant]
     Active Substance: IBUPROFEN
  10. LOSARTAN POTASSIUM [Concomitant]
     Active Substance: LOSARTAN POTASSIUM
  11. METFORMIN HYDROCHLORIDE [Concomitant]
     Active Substance: METFORMIN HYDROCHLORIDE

REACTIONS (3)
  - Anaemia [None]
  - Pneumonia [None]
  - Pancytopenia [None]
